FAERS Safety Report 9640866 (Version 1)
Quarter: 2013Q4

REPORT INFORMATION
  Report Type: Spontaneous
  Country: US (occurrence: US)
  Receive Date: 20131023
  Receipt Date: 20131023
  Transmission Date: 20140711
  Serious: No
  Sender: FDA-Public Use
  Company Number: US-ABBVIE-13P-163-1037630-00

PATIENT
  Age: 46 Year
  Sex: Female

DRUGS (6)
  1. LUPRON DEPOT [Suspect]
     Indication: ENDOMETRIOSIS
     Dates: start: 201301
  2. SAVELLA [Concomitant]
     Indication: FIBROMYALGIA
  3. NEURONTIN [Concomitant]
     Indication: FIBROMYALGIA
  4. TOPAMAX [Concomitant]
     Indication: HEADACHE
  5. TRAZODONE [Concomitant]
     Indication: HEADACHE
  6. HYDROCODONE [Concomitant]
     Indication: HEADACHE

REACTIONS (1)
  - Rash [Recovered/Resolved]
